FAERS Safety Report 6866616-8 (Version None)
Quarter: 2010Q2

REPORT INFORMATION
  Report Type: 
  Country: None (occurrence: None)
  Receive Date: 20100603
  Receipt Date: 20090630
  Transmission Date: 20101027
  Serious: Yes (Hospitalization)
  Sender: FDA-Public Use
  Company Number: US-SEPTODONT-200900134

PATIENT
  Age: 50 Year
  Sex: Female

DRUGS (3)
  1. SEPTOCAINE [Suspect]
     Indication: LOCAL ANAESTHESIA
     Dosage: DENTAL
     Route: 004
     Dates: start: 20090629, end: 20090629
  2. PRILOSEC (OMEPRAZOLE) [Concomitant]
  3. ASPIRIN [Concomitant]

REACTIONS (2)
  - CONVULSION [None]
  - TREMOR [None]
